FAERS Safety Report 6506494-X (Version None)
Quarter: 2009Q4

REPORT INFORMATION
  Report Type: 
  Country: None (occurrence: None)
  Receive Date: 20091216
  Receipt Date: 20091130
  Transmission Date: 20100525
  Serious: Yes (Death, Hospitalization)
  Sender: FDA-Public Use
  Company Number: 2009-5063

PATIENT
  Sex: Male
  Weight: 60 kg

DRUGS (3)
  1. APOMIDE (APO-GO) (APOMORPHINE HYDROCHLORIDE) (APOMORPHINE HYDROCHLORID [Suspect]
     Indication: PARKINSON'S DISEASE
     Dosage: 30 MG (30 MG, DAILY, SUBCUTANEOUS
     Route: 058
     Dates: start: 20091101, end: 20091122
  2. PRAMIPEXOLE DIHYDROCHLORIDE [Concomitant]
  3. STALEVO (STALEVO) [Concomitant]

REACTIONS (3)
  - HIP FRACTURE [None]
  - MYOCARDIAL INFARCTION [None]
  - PARKINSON'S DISEASE [None]
